FAERS Safety Report 7248115-7 (Version None)
Quarter: 2011Q1

REPORT INFORMATION
  Report Type: 
  Country: None (occurrence: None)
  Receive Date: 20110127
  Receipt Date: 20110124
  Transmission Date: 20110831
  Serious: Yes (Other)
  Sender: FDA-Public Use
  Company Number: US-B.I. PHARMACEUTICALS,INC./RIDGEFIELD-2011-BP-00429BP

PATIENT
  Sex: Male

DRUGS (14)
  1. BENAZEPRIL HYDROCHLORIDE [Concomitant]
     Dosage: 40 MG
     Route: 048
  2. FOLIC ACID [Concomitant]
  3. TORSEMIDE [Concomitant]
     Indication: CARDIAC FAILURE CONGESTIVE
     Route: 048
  4. PROBIOTIC [Concomitant]
  5. PRADAXA [Suspect]
     Indication: ANTICOAGULANT THERAPY
  6. METAMUCIL-2 [Concomitant]
  7. CARVEDILOL [Suspect]
     Dosage: 6.25 MG
     Route: 048
     Dates: start: 20101207, end: 20101229
  8. CARVEDILOL [Suspect]
     Dosage: 12.5 MG
     Route: 048
     Dates: start: 20101230
  9. ASCORBIC ACID [Concomitant]
  10. VITAMIN B COMPLEX CAP [Concomitant]
  11. PRADAXA [Suspect]
     Indication: ATRIAL FIBRILLATION
     Dosage: 300 MG
     Route: 048
     Dates: start: 20101230
  12. FISH OIL [Concomitant]
  13. VITAMIN B-12 [Concomitant]
  14. VITAMIN D [Concomitant]

REACTIONS (1)
  - BLOOD GLUCOSE DECREASED [None]
